FAERS Safety Report 4710763-3 (Version None)
Quarter: 2005Q3

REPORT INFORMATION
  Report Type: 
  Country: None (occurrence: None)
  Receive Date: 20050711
  Receipt Date: 20050627
  Transmission Date: 20060218
  Serious: Yes (Disabling)
  Sender: FDA-Public Use
  Company Number: PHEH2005US07275

PATIENT
  Age: 54 Year
  Sex: Male

DRUGS (4)
  1. GLEEVEC [Suspect]
     Indication: GASTROINTESTINAL STROMAL TUMOUR
     Dosage: 400 MG, QD
     Route: 048
     Dates: start: 20020501, end: 20050301
  2. GLEEVEC [Suspect]
     Dosage: 600 MG, UNK
  3. PROCRIT                            /00909301/ [Concomitant]
     Indication: ANAEMIA
     Dosage: 60 K Q WEEK
     Dates: start: 20020701
  4. OXYCONTIN [Concomitant]
     Indication: PAIN
     Dosage: 80 MG, TID
     Dates: start: 20020701

REACTIONS (1)
  - MUSCLE INJURY [None]
